FAERS Safety Report 9238775 (Version 1)
Quarter: 2013Q2

REPORT INFORMATION
  Report Type: Report from Study
  Country: US (occurrence: US)
  Receive Date: 20130418
  Receipt Date: 20130418
  Transmission Date: 20140414
  Serious: No
  Sender: FDA-Public Use
  Company Number: US-009507513-1208USA001430

PATIENT
  Sex: Female

DRUGS (1)
  1. RIBAVIRIN (+) INTERFERON ALFA-2B [Suspect]
     Dosage: UNK
     Dates: end: 20090801

REACTIONS (1)
  - Maternal exposure before pregnancy [Unknown]
